FAERS Safety Report 8350597-4 (Version None)
Quarter: 2012Q2

REPORT INFORMATION
  Report Type: 
  Country: None (occurrence: None)
  Receive Date: 20120510
  Receipt Date: 20120404
  Transmission Date: 20120825
  Serious: Yes (Hospitalization)
  Sender: FDA-Public Use
  Company Number: FR-MERCK-1204USA00883

PATIENT
  Age: 60 Year
  Sex: Male

DRUGS (7)
  1. HYZAAR [Suspect]
     Route: 048
  2. ASPIRIN [Suspect]
     Route: 048
  3. ERGOCALCIFEROL [Suspect]
     Route: 048
  4. ACAMPROSATE CALCIUM [Suspect]
     Route: 048
  5. PANTOPRAZOLE [Suspect]
     Route: 048
  6. POTASSIUM CHLORIDE [Suspect]
     Route: 048
  7. CRESTOR [Suspect]
     Route: 048

REACTIONS (2)
  - PANCREATITIS ACUTE [None]
  - OEDEMATOUS PANCREATITIS [None]
